FAERS Safety Report 9495874 (Version 2)
Quarter: 2013Q4

REPORT INFORMATION
  Report Type: Spontaneous
  Country: GB (occurrence: GB)
  Receive Date: 20130903
  Receipt Date: 20131129
  Transmission Date: 20140711
  Serious: Yes (Other)
  Sender: FDA-Public Use
  Company Number: GB-MERCK-1309GBR000483

PATIENT
  Age: 18 Year
  Sex: Female

DRUGS (5)
  1. SINGULAIR [Suspect]
     Indication: ASTHMA
     Dosage: 10 MG, UNK
     Route: 048
     Dates: start: 20130417, end: 2013
  2. SINGULAIR [Suspect]
     Dosage: 5 MG, UNK
     Route: 048
     Dates: start: 20090508, end: 20130417
  3. CLENIL MODULITE [Concomitant]
     Dosage: INHALER
     Route: 055
     Dates: start: 2011
  4. VENTOLIN (ALBUTEROL) [Concomitant]
     Indication: ASTHMA
     Dosage: INHALER
     Route: 055
     Dates: start: 2008
  5. AMOXICILLIN [Concomitant]

REACTIONS (3)
  - Epilepsy [Unknown]
  - Grand mal convulsion [Recovered/Resolved]
  - Grand mal convulsion [Recovered/Resolved]
